FAERS Safety Report 23591903 (Version 2)
Quarter: 2024Q2

REPORT INFORMATION
  Report Type: Spontaneous
  Country: US (occurrence: US)
  Receive Date: 20240304
  Receipt Date: 20240416
  Transmission Date: 20240716
  Serious: No
  Sender: FDA-Public Use
  Company Number: US-PFIZER INC-PV202400028870

PATIENT
  Age: 73 Year
  Sex: Female

DRUGS (29)
  1. PAXLOVID [Suspect]
     Active Substance: NIRMATRELVIR\RITONAVIR
     Indication: COVID-19 treatment
     Dosage: UNK (20X150MG AND 10X100MG)
     Dates: start: 20240213
  2. HUMALOG [Concomitant]
     Active Substance: INSULIN LISPRO
     Dosage: APPROXIMATELY 110 UNITS PER DAY
  3. METFORMIN [Concomitant]
     Active Substance: METFORMIN HYDROCHLORIDE
     Dosage: 1 DF, 2X/DAY (BREAKFAST / DINNER)
  4. COZAAR [Concomitant]
     Active Substance: LOSARTAN POTASSIUM
     Dosage: 1 DF, DAILY (PM)
  5. ZETIA [Concomitant]
     Active Substance: EZETIMIBE
     Dosage: 1 DF, DAILY (PM)
  6. CRESTOR [Concomitant]
     Active Substance: ROSUVASTATIN CALCIUM
     Dosage: 1 DF, WEEKLY (PM, SATURDAYS ONLY)
  7. LASIX [Concomitant]
     Active Substance: FUROSEMIDE
     Dosage: 2 DF, DAILY (AM AND AFTERNOON, AFTERNOON DOSE WHEN SCHEDULE ALLOWS)
  8. ADVAIR HFA [Concomitant]
     Active Substance: FLUTICASONE PROPIONATE\SALMETEROL XINAFOATE
     Dosage: 2 DF, 2X/DAY (250/50MG, AM AND PM)
  9. ALBUTEROL [Concomitant]
     Active Substance: ALBUTEROL
     Dosage: 1 DF (VIA NEBULIZER, MORE IF NEEDED)
  10. ZOLMITRIPTAN [Concomitant]
     Active Substance: ZOLMITRIPTAN
     Indication: Migraine
     Dosage: UNK, AS NEEDED
  11. MESALAMINE [Concomitant]
     Active Substance: MESALAMINE
     Dosage: 4 DF, 1X/DAY (4 CAPS 1X A DAY, AM)
  12. VICTOZA [Concomitant]
     Active Substance: LIRAGLUTIDE
     Dosage: UNK UNK, 1X/DAY (AM)
  13. PROAIR HFA [Concomitant]
     Active Substance: ALBUTEROL SULFATE
     Dosage: UNK, AS NEEDED (2 PUFFS, RESCUE INHALER)
  14. FOSAMAX [Concomitant]
     Active Substance: ALENDRONATE SODIUM
     Dosage: UNK UNK, WEEKLY (1X WEEK, SUNDAY AM)
     Dates: start: 20210411
  15. TEZSPIRE [Concomitant]
     Active Substance: TEZEPELUMAB-EKKO
     Dosage: UNK, TAKE AS INJECTION EVERY 28 DAYS
  16. DOXYCYCLINE HYCLATE [Concomitant]
     Active Substance: DOXYCYCLINE HYCLATE
     Indication: Rosacea
     Dosage: 2 DF, DAILY (AM, PM)
  17. ASPIRIN [Concomitant]
     Active Substance: ASPIRIN
     Dosage: 1 DF, DAILY (DINNER)
  18. MAGNESIUM GLYCINATE [Concomitant]
     Active Substance: MAGNESIUM GLYCINATE
     Dosage: 2 DF, DAILY (PM)
  19. MUCINEX [Concomitant]
     Active Substance: GUAIFENESIN
     Dosage: 1 DF, AS NEEDED (PM)
  20. HIGH GAMMA VITAMIN E [Concomitant]
     Dosage: 1 DF, DAILY (AM)
  21. COENZYME Q10 [Concomitant]
     Active Substance: DIETARY SUPPLEMENT\UBIDECARENONE
     Dosage: 1 DF, DAILY (AM)
  22. CALCIUM\VITAMIN D [Concomitant]
     Active Substance: CALCIUM\VITAMIN D
     Dosage: 1 DF, DAILY (600MG/500IU, DINNER)
  23. VITAMINS NOS [Concomitant]
     Active Substance: VITAMINS
     Dosage: 1 DF, DAILY (DINNER)
  24. MIRALAX [Concomitant]
     Active Substance: POLYETHYLENE GLYCOL 3350
     Dosage: UNK, 1X/DAY (POWDER, BREAKFAST)
  25. VITAMIN D NOS [Concomitant]
     Active Substance: VITAMIN D NOS
     Dosage: UNK, 1X/DAY (AM)
  26. FERROUS SULFATE [Concomitant]
     Active Substance: FERROUS SULFATE
     Dosage: UNK, 1X/DAY (DINNER, TAKE WITH 250MG VITAMIN C FOR ABSORPTION)
  27. NASACORT [Concomitant]
     Active Substance: TRIAMCINOLONE ACETONIDE
     Indication: Hypersensitivity
     Dosage: UNK, 2X/DAY (SPRAY, AM/PM)
  28. MURO 128 [Concomitant]
     Active Substance: SODIUM CHLORIDE
     Dosage: UNK, 1X/DAY (BEDTIME, 1/4 SQUEEZED INTO EACH EYE)
  29. ZITHROMAX [Concomitant]
     Active Substance: AZITHROMYCIN DIHYDRATE
     Indication: Sinusitis
     Dosage: UNK

REACTIONS (1)
  - Therapeutic response unexpected [Unknown]

NARRATIVE: CASE EVENT DATE: 20240214
